FAERS Safety Report 8122272-2 (Version None)
Quarter: 2012Q1

REPORT INFORMATION
  Report Type: 
  Country: None (occurrence: None)
  Receive Date: 20120208
  Receipt Date: 20120130
  Transmission Date: 20120608
  Serious: Yes (Hospitalization)
  Sender: FDA-Public Use
  Company Number: US-ELI_LILLY_AND_COMPANY-US201111006538

PATIENT
  Sex: Female

DRUGS (3)
  1. PENICILLIN G [Concomitant]
  2. XIGRIS [Suspect]
     Indication: SEPSIS
     Dosage: UNK UNK, UNKNOWN
     Route: 042
     Dates: start: 20110805, end: 20110801
  3. CLINDAMYCIN [Concomitant]

REACTIONS (1)
  - FINGER AMPUTATION [None]
